FAERS Safety Report 20231046 (Version 1)
Quarter: 2021Q4

REPORT INFORMATION
  Report Type: Spontaneous
  Country: SE (occurrence: SE)
  Receive Date: 20211227
  Receipt Date: 20211227
  Transmission Date: 20220303
  Serious: Yes (Other)
  Sender: FDA-Public Use
  Company Number: SE-PFIZER INC-202101782873

PATIENT
  Age: 52 Year
  Sex: Male

DRUGS (1)
  1. LORLATINIB [Suspect]
     Active Substance: LORLATINIB
     Indication: Lung cancer metastatic
     Dosage: 75 MG, 1X/DAY
     Dates: start: 202007

REACTIONS (3)
  - Diabetes mellitus inadequate control [Unknown]
  - Blood cholesterol increased [Unknown]
  - Blood triglycerides increased [Unknown]

NARRATIVE: CASE EVENT DATE: 20210901
